FAERS Safety Report 14081324 (Version 11)
Quarter: 2019Q1

REPORT INFORMATION
  Report Type: Spontaneous
  Country: US (occurrence: US)
  Receive Date: 20171012
  Receipt Date: 20190213
  Transmission Date: 20190417
  Serious: Yes (Hospitalization)
  Sender: FDA-Public Use
  Company Number: US-ACTELION-A-NJ2017-160724

PATIENT
  Age: 64 Year
  Sex: Female

DRUGS (5)
  1. ADCIRCA [Concomitant]
     Active Substance: TADALAFIL
  2. OXYCODONE [Concomitant]
     Active Substance: OXYCODONE
  3. LORAZEPAM. [Concomitant]
     Active Substance: LORAZEPAM
  4. FENTANYL. [Concomitant]
     Active Substance: FENTANYL
  5. OPSUMIT [Suspect]
     Active Substance: MACITENTAN
     Indication: PULMONARY ARTERIAL HYPERTENSION
     Dosage: 10 MG, QD
     Route: 048
     Dates: start: 201703

REACTIONS (13)
  - Product dose omission [Unknown]
  - Memory impairment [Unknown]
  - Oedema peripheral [Not Recovered/Not Resolved]
  - Vasodilatation [Unknown]
  - Cataract [Unknown]
  - Gastrointestinal haemorrhage [Unknown]
  - Atrial fibrillation [Unknown]
  - Multiple allergies [Unknown]
  - Heart rate irregular [Unknown]
  - Oedema [Not Recovered/Not Resolved]
  - Fatigue [Unknown]
  - Tinnitus [Not Recovered/Not Resolved]
  - Heart rate increased [Not Recovered/Not Resolved]

NARRATIVE: CASE EVENT DATE: 201703
